FAERS Safety Report 24889878 (Version 2)
Quarter: 2025Q1

REPORT INFORMATION
  Report Type: Spontaneous
  Country: FR (occurrence: FR)
  Receive Date: 20250127
  Receipt Date: 20250220
  Transmission Date: 20250409
  Serious: Yes (Other)
  Sender: MYLAN
  Company Number: None

PATIENT
  Age: 24 Year
  Sex: Female

DRUGS (5)
  1. TRAMADOL [Suspect]
     Active Substance: TRAMADOL
     Indication: Back pain
     Dosage: 100 MILLIGRAM, QD,(100MG/DAY INITIALLY, INCREASED GRADUALLY)
     Route: 048
     Dates: start: 20220125, end: 20230119
  2. TRAMADOL [Suspect]
     Active Substance: TRAMADOL
     Dosage: 600 MILLIGRAM, QD
     Route: 048
     Dates: start: 20230119, end: 20240124
  3. TRAMADOL [Suspect]
     Active Substance: TRAMADOL
     Dosage: 100 MILLIGRAM, BID
     Route: 048
     Dates: start: 20240125, end: 20240207
  4. TRAMADOL [Suspect]
     Active Substance: TRAMADOL
     Dosage: 150 MILLIGRAM, QD
     Route: 048
     Dates: start: 20240208, end: 20240311
  5. TRAMADOL [Suspect]
     Active Substance: TRAMADOL
     Dosage: 50 MILLIGRAM, BID
     Route: 048
     Dates: start: 20240312, end: 20240722

REACTIONS (4)
  - Drug use disorder [Recovered/Resolved]
  - Drug dependence [Recovered/Resolved]
  - Seizure [Recovered/Resolved]
  - Withdrawal syndrome [Recovered/Resolved]

NARRATIVE: CASE EVENT DATE: 20220125
